FAERS Safety Report 19482922 (Version 8)
Quarter: 2022Q1

REPORT INFORMATION
  Report Type: Spontaneous
  Country: US (occurrence: None)
  Receive Date: 20210701
  Receipt Date: 20220131
  Transmission Date: 20220424
  Serious: Yes (Death, Life-Threatening, Hospitalization)
  Sender: FDA-Public Use
  Company Number: US-FRESENIUS KABI-FK202106606

PATIENT
  Age: 56 Year
  Sex: Female
  Weight: 60.5 kg

DRUGS (68)
  1. FLUDARABINE [Suspect]
     Active Substance: FLUDARABINE PHOSPHATE
     Indication: Plasma cell myeloma
     Route: 042
     Dates: start: 20210414, end: 20210416
  2. CYCLOPHOSPHAMIDE [Suspect]
     Active Substance: CYCLOPHOSPHAMIDE
     Indication: Plasma cell myeloma
     Route: 042
     Dates: start: 20210414, end: 20210416
  3. CYCLOPHOSPHAMIDE [Suspect]
     Active Substance: CYCLOPHOSPHAMIDE
     Indication: Disease progression
     Dosage: UNK
     Route: 065
     Dates: start: 20210525, end: 20210701
  4. SODIUM CHLORIDE [Concomitant]
     Active Substance: SODIUM CHLORIDE
     Indication: Product used for unknown indication
     Dosage: 10-15 MILLILITER Q12 HOURS, 1 IN 12 HR, IV
     Route: 042
  5. SODIUM CHLORIDE [Concomitant]
     Active Substance: SODIUM CHLORIDE
     Indication: Sepsis
     Dosage: 20-25 ML/HR, PRN, IV
     Route: 042
  6. SODIUM CHLORIDE [Concomitant]
     Active Substance: SODIUM CHLORIDE
     Dosage: ONCE, IV
     Route: 042
     Dates: start: 20210427, end: 20210427
  7. SODIUM CHLORIDE [Concomitant]
     Active Substance: SODIUM CHLORIDE
     Dosage: ONCE, IV
     Route: 042
     Dates: start: 20210429, end: 20210429
  8. SODIUM CHLORIDE [Concomitant]
     Active Substance: SODIUM CHLORIDE
     Dosage: END DATE: UNKNOWN?AS NEEDED, IV
     Route: 042
     Dates: start: 20210430
  9. SODIUM CHLORIDE [Concomitant]
     Active Substance: SODIUM CHLORIDE
     Dosage: END DATE: UNKNOWN?10-15 MILLILITER, AS NEEDED, INTRA-CATHETER
     Dates: start: 20210505
  10. SODIUM CHLORIDE [Concomitant]
     Active Substance: SODIUM CHLORIDE
     Dosage: END DATE: UNKNOWN?100-150 ML/HR, AS NEEDED, IV
     Route: 042
     Dates: start: 20210507
  11. SODIUM CHLORIDE [Concomitant]
     Active Substance: SODIUM CHLORIDE
     Dosage: ONCE, IV
     Route: 042
     Dates: start: 20210507, end: 20210507
  12. SODIUM CHLORIDE [Concomitant]
     Active Substance: SODIUM CHLORIDE
     Dosage: ONCE, IV
     Route: 042
     Dates: start: 20210512, end: 20210512
  13. SODIUM CHLORIDE [Concomitant]
     Active Substance: SODIUM CHLORIDE
     Dosage: AS NEEDED, IV
     Route: 042
     Dates: start: 20210512, end: 20210512
  14. SODIUM CHLORIDE [Concomitant]
     Active Substance: SODIUM CHLORIDE
     Dosage: ONCE, IV
     Route: 042
     Dates: start: 20210514, end: 20210514
  15. SODIUM CHLORIDE [Concomitant]
     Active Substance: SODIUM CHLORIDE
     Dosage: X 2, IV
     Route: 042
     Dates: start: 20210523, end: 20210523
  16. SODIUM CHLORIDE [Concomitant]
     Active Substance: SODIUM CHLORIDE
     Dosage: ONCE, IV
     Route: 042
     Dates: start: 20210606, end: 20210606
  17. CALCIUM CHLORIDE\POTASSIUM CHLORIDE\SODIUM CHLORIDE\SODIUM LACTATE [Concomitant]
     Active Substance: CALCIUM CHLORIDE\POTASSIUM CHLORIDE\SODIUM CHLORIDE\SODIUM LACTATE
     Indication: Product used for unknown indication
     Dosage: ONCE, IVB
     Route: 040
     Dates: start: 20210426, end: 20210426
  18. CALCIUM CHLORIDE\POTASSIUM CHLORIDE\SODIUM CHLORIDE\SODIUM LACTATE [Concomitant]
     Active Substance: CALCIUM CHLORIDE\POTASSIUM CHLORIDE\SODIUM CHLORIDE\SODIUM LACTATE
     Indication: Sepsis
     Dosage: ONCE, IV
     Route: 042
     Dates: start: 20210427, end: 20210427
  19. CALCIUM CHLORIDE\POTASSIUM CHLORIDE\SODIUM CHLORIDE\SODIUM LACTATE [Concomitant]
     Active Substance: CALCIUM CHLORIDE\POTASSIUM CHLORIDE\SODIUM CHLORIDE\SODIUM LACTATE
     Dosage: 500 MILLILITER, X 2, IVB
     Route: 040
     Dates: start: 20210429, end: 20210429
  20. CALCIUM CHLORIDE\POTASSIUM CHLORIDE\SODIUM CHLORIDE\SODIUM LACTATE [Concomitant]
     Active Substance: CALCIUM CHLORIDE\POTASSIUM CHLORIDE\SODIUM CHLORIDE\SODIUM LACTATE
     Dosage: ONCE, IV
     Route: 042
     Dates: start: 20210606, end: 20210606
  21. MAGNESIUM SULFATE [Concomitant]
     Active Substance: MAGNESIUM SULFATE
     Indication: Hypomagnesaemia
     Dosage: ONCE, IV
     Route: 042
     Dates: start: 20210428, end: 20210428
  22. MAGNESIUM SULFATE [Concomitant]
     Active Substance: MAGNESIUM SULFATE
     Dosage: ONCE, IV
     Route: 042
     Dates: start: 20210430, end: 20210430
  23. MAGNESIUM SULFATE [Concomitant]
     Active Substance: MAGNESIUM SULFATE
     Dosage: ONCE, IV
     Route: 042
     Dates: start: 20210503, end: 20210503
  24. MAGNESIUM SULFATE [Concomitant]
     Active Substance: MAGNESIUM SULFATE
     Dosage: ONCE, IV
     Route: 042
     Dates: start: 20210510, end: 20210510
  25. MAGNESIUM SULFATE [Concomitant]
     Active Substance: MAGNESIUM SULFATE
     Dosage: ONCE, IV
     Route: 042
     Dates: start: 20210514, end: 20210514
  26. ACETAMINOPHEN [Concomitant]
     Active Substance: ACETAMINOPHEN
     Indication: Product used for unknown indication
     Dosage: END DATE: UNKNOWN?ONCE, PO
     Route: 048
     Dates: start: 20210427
  27. ACETAMINOPHEN [Concomitant]
     Active Substance: ACETAMINOPHEN
     Dosage: END DATE: UNKNOWN?AS NEEDED, IV
     Route: 042
     Dates: start: 20210519
  28. MAGNESIUM HYDROXIDE/SIMETICONE/ALUMINIUM HYDROXIDE [Concomitant]
     Indication: Product used for unknown indication
     Dosage: END DATE: UNKNOWN?200 MG-200 MG-20 MG/ 5 ML ORAL SUSPENSION, PRN, PO
     Route: 048
     Dates: start: 20210426
  29. SULFAMETHOXAZOLE\TRIMETHOPRIM [Concomitant]
     Active Substance: SULFAMETHOXAZOLE\TRIMETHOPRIM
     Indication: Infection prophylaxis
     Dosage: END DATE: UNKNOWN?800/160 MILLIGRAM, 3 IN 1 WK, PO
     Route: 048
     Dates: start: 20210426
  30. SULFAMETHOXAZOLE\TRIMETHOPRIM [Concomitant]
     Active Substance: SULFAMETHOXAZOLE\TRIMETHOPRIM
     Dosage: ONGOING?800-160 MILLIGRAM, 3 IN 1 WK, PO
     Route: 048
     Dates: start: 202011
  31. PROPOFOL [Concomitant]
     Active Substance: PROPOFOL
     Indication: Product used for unknown indication
     Dosage: END DATE: UNKNOWN?AS NEEDED, IV
     Route: 042
     Dates: start: 20210519
  32. PROPOFOL [Concomitant]
     Active Substance: PROPOFOL
     Dosage: END DATE: UNKNOWN?AS NEEDED, IV
     Route: 042
     Dates: start: 20210519
  33. PROPOFOL [Concomitant]
     Active Substance: PROPOFOL
     Dosage: END DATE: UNKNOWN?AS NEEDED, IV
     Route: 042
     Dates: start: 20210519
  34. LORAZEPAM [Concomitant]
     Active Substance: LORAZEPAM
     Indication: Anxiety
     Dosage: END DATE: UNKNOWN?3 MILLIGRAM, PRN, PO
     Route: 048
     Dates: start: 20210426
  35. LIDOCAINE [Concomitant]
     Active Substance: LIDOCAINE
     Indication: Bone pain
     Dosage: END DATE: UNKNOWN?1 PATCH, 1 IN 1 D, TD
     Route: 062
     Dates: start: 20210426
  36. LIDOCAINE [Concomitant]
     Active Substance: LIDOCAINE
     Indication: Back pain
     Dosage: END DATE: UNKNOWN?INFILTRATION
     Route: 065
     Dates: start: 20210519
  37. LIDOCAINE [Concomitant]
     Active Substance: LIDOCAINE
     Dosage: END DATE: UNKNOWN?AS NEEDED, IV
     Route: 042
     Dates: start: 20210519
  38. ALBUMIN HUMAN [Concomitant]
     Active Substance: ALBUMIN HUMAN
     Indication: Product used for unknown indication
     Dosage: ONCE, IV
     Route: 042
     Dates: start: 20210427, end: 20210427
  39. ALBUMIN HUMAN [Concomitant]
     Active Substance: ALBUMIN HUMAN
     Indication: Sepsis
     Dosage: ONCE, IV
     Route: 042
     Dates: start: 202106, end: 202106
  40. ALBUMIN HUMAN [Concomitant]
     Active Substance: ALBUMIN HUMAN
     Dosage: ONCE, IV
     Route: 042
     Dates: start: 202106, end: 202106
  41. GABAPENTIN [Concomitant]
     Active Substance: GABAPENTIN
     Indication: Neuropathy peripheral
     Dosage: END DATE: UNKNOWN?900 MILLIGRAM, 1 IN 8 HR, PO
     Route: 048
     Dates: start: 20210426
  42. GABAPENTIN [Concomitant]
     Active Substance: GABAPENTIN
     Dosage: ONGOING?900 MILLIGRAM, 3 IN 1 D, PO
     Route: 048
     Dates: start: 201902
  43. FILGRASTIM AAFI [Concomitant]
     Indication: Product used for unknown indication
     Dosage: END DATE: UNKNOWN?ONCE, SC
     Route: 058
     Dates: start: 20210428
  44. FILGRASTIM AAFI [Concomitant]
     Dosage: END DATE: UNKNOWN?ONCE, SC
     Route: 058
     Dates: start: 20210503
  45. FILGRASTIM AAFI [Concomitant]
     Dosage: END DATE: UNKNOWN?AS NEEDED, SC
     Route: 058
     Dates: start: 20210507
  46. FILGRASTIM AAFI [Concomitant]
     Dosage: END DATE: UNKNOWN?ONCE, SC
     Route: 058
     Dates: start: 20210426
  47. CEFEPIME [Concomitant]
     Active Substance: CEFEPIME HYDROCHLORIDE
     Indication: Product used for unknown indication
     Dosage: END DATE: UNKNOWN?2 GRAM, 1 IN 12 HR, IV
     Route: 042
     Dates: start: 20210426
  48. HUMAN IMMUNOGLOBULIN G [Concomitant]
     Active Substance: HUMAN IMMUNOGLOBULIN G
     Indication: Product used for unknown indication
     Dosage: END DATE: UNKNOWN?ONCE, IV
     Route: 042
     Dates: start: 20210427
  49. CARVEDILOL [Concomitant]
     Active Substance: CARVEDILOL
     Indication: Ventricular dysfunction
     Dosage: END DATE: UNKNOWN?6.25 MILLIGRAM, WITH MEALS, PO
     Route: 048
     Dates: start: 20210426
  50. CARVEDILOL [Concomitant]
     Active Substance: CARVEDILOL
     Dosage: ONGOING?6.25 MILLIGRAM, 2 IN 1 D, PO
     Route: 048
     Dates: start: 20210115
  51. FLUDEOXYGLUCOSE [Concomitant]
     Active Substance: FLUDEOXYGLUCOSE
     Indication: Product used for unknown indication
     Dosage: ONCE, IV
     Route: 042
     Dates: start: 20210519, end: 20210519
  52. TRAMADOL [Concomitant]
     Active Substance: TRAMADOL
     Indication: Bone pain
     Dosage: END DATE: UNKNOWN?PRN, PO
     Route: 048
     Dates: start: 20210426
  53. TRAMADOL [Concomitant]
     Active Substance: TRAMADOL
     Dosage: ONGOING?AS NEEDED, PO
     Route: 048
     Dates: start: 2019
  54. DIPHENHYDRAMINE [Concomitant]
     Active Substance: DIPHENHYDRAMINE
     Indication: Product used for unknown indication
     Dosage: ONCE, PO
     Route: 048
     Dates: start: 20210427, end: 20210427
  55. CANNABIS SATIVA FLOWERING TOP [Concomitant]
     Active Substance: CANNABIS SATIVA FLOWERING TOP
     Indication: Pain
     Dosage: END DATE: UNKNOWN?UNK
     Route: 065
     Dates: start: 2021
  56. CANNABIS SATIVA FLOWERING TOP [Concomitant]
     Active Substance: CANNABIS SATIVA FLOWERING TOP
     Indication: Increased appetite
  57. CALCIUM GLUCONATE\MAGNESIUM CARBONATE\POTASSIUM CHLORIDE\SODIUM CHLORI [Concomitant]
     Active Substance: CALCIUM GLUCONATE\MAGNESIUM CARBONATE\POTASSIUM CHLORIDE\SODIUM CHLORIDE
     Indication: Product used for unknown indication
     Dosage: ELECTROLYTE-A ?ONCE, IV
     Route: 042
     Dates: start: 20210502, end: 20210502
  58. CALCIUM GLUCONATE\MAGNESIUM CARBONATE\POTASSIUM CHLORIDE\SODIUM CHLORI [Concomitant]
     Active Substance: CALCIUM GLUCONATE\MAGNESIUM CARBONATE\POTASSIUM CHLORIDE\SODIUM CHLORIDE
     Indication: Sepsis
     Dosage: ELECTROLYTE-A ?ONCE, IV
     Route: 042
     Dates: start: 20210606, end: 20210606
  59. ACYCLOVIR [Concomitant]
     Active Substance: ACYCLOVIR
     Indication: Product used for unknown indication
     Dosage: END DATE: UNKNOWN?800 MILLIGRAM, 2 IN 1 D, PO
     Route: 048
     Dates: start: 20210426
  60. VALACYCLOVIR HYDROCHLORIDE [Concomitant]
     Active Substance: VALACYCLOVIR HYDROCHLORIDE
     Indication: Infection prophylaxis
     Dosage: END DATE: UNKNOWN?1000 MILLIGRAM, 2 IN 1 D, PO
     Route: 048
     Dates: start: 20190719
  61. VALACYCLOVIR HYDROCHLORIDE [Concomitant]
     Active Substance: VALACYCLOVIR HYDROCHLORIDE
     Dosage: ONGOING?1000 MILLIGRAM, 2 IN 1 D, PO
     Route: 048
     Dates: start: 20210504
  62. TOCILIZUMAB [Concomitant]
     Active Substance: TOCILIZUMAB
     Indication: Cytokine release syndrome
     Dosage: BEGAN AND END DATE: UNKNOWN?NOT PROVIDED, UNK
     Route: 065
  63. LEVOFLOXACIN [Concomitant]
     Active Substance: LEVOFLOXACIN
     Indication: Prophylaxis
     Route: 065
     Dates: start: 20210526
  64. CYANOCOBALAMIN [Concomitant]
     Active Substance: CYANOCOBALAMIN
     Indication: Anaemia
     Dosage: 1000 UG/ML, 1 IN 1 WK, IM?ONGOING
     Route: 030
     Dates: start: 20210115
  65. CANNABIS SATIVA FLOWERING TOP [Concomitant]
     Active Substance: CANNABIS SATIVA FLOWERING TOP
     Indication: Bone pain
     Dosage: AS NEEDED, INH?UNKNOWN- ONGOING
     Dates: start: 20210115
  66. CANNABIS SATIVA FLOWERING TOP [Concomitant]
     Active Substance: CANNABIS SATIVA FLOWERING TOP
     Indication: Back pain
  67. FAMOTIDINE [Concomitant]
     Active Substance: FAMOTIDINE
     Indication: Gastrooesophageal reflux disease
     Dosage: AS NEEDED, PO?ONGOING
     Route: 048
     Dates: start: 202002
  68. ERGOCALCIFEROL [Concomitant]
     Active Substance: ERGOCALCIFEROL
     Indication: Prophylaxis
     Dosage: 50,000 UNITS, 1 IN 1 WK, PO?ONGOING
     Route: 048
     Dates: start: 202002

REACTIONS (4)
  - Extradural haematoma [Recovered/Resolved]
  - Sepsis [Recovered/Resolved]
  - Disease progression [Fatal]
  - Subdural haematoma [Recovered/Resolved]

NARRATIVE: CASE EVENT DATE: 20210513
